FAERS Safety Report 7619963-6 (Version None)
Quarter: 2011Q3

REPORT INFORMATION
  Report Type: 
  Country: None (occurrence: None)
  Receive Date: 20110719
  Receipt Date: 20110714
  Transmission Date: 20111222
  Serious: Yes (Other)
  Sender: FDA-Public Use
  Company Number: US-SANOFI-AVENTIS-2011SA045523

PATIENT
  Age: 82 Year
  Sex: Female

DRUGS (8)
  1. LISINOPRIL [Concomitant]
  2. ASPIRIN [Concomitant]
  3. CARVEDILOL [Concomitant]
     Dates: start: 20110708
  4. LEVOTHYROXINE SODIUM [Concomitant]
  5. METFORMIN HCL [Concomitant]
  6. MULTAQ [Suspect]
     Indication: ARRHYTHMIA
     Route: 048
     Dates: start: 20110708, end: 20110711
  7. DILTIAZEM [Concomitant]
     Route: 051
     Dates: start: 20110708
  8. PRAVACHOL [Concomitant]
     Dates: start: 20110710

REACTIONS (5)
  - HEPATORENAL FAILURE [None]
  - BLOOD CREATININE INCREASED [None]
  - BLOOD UREA INCREASED [None]
  - MENTAL STATUS CHANGES [None]
  - HEPATOCELLULAR INJURY [None]
